FAERS Safety Report 7533134-3 (Version None)
Quarter: 2011Q2

REPORT INFORMATION
  Report Type: 
  Country: None (occurrence: None)
  Receive Date: 20110608
  Receipt Date: 20020201
  Transmission Date: 20111010
  Serious: Yes (Death, Hospitalization)
  Sender: FDA-Public Use
  Company Number: PHBS2002VE16294

PATIENT
  Age: 85 Year
  Sex: Female

DRUGS (1)
  1. STARLIX [Suspect]
     Dosage: 120 MG, UNK

REACTIONS (3)
  - OBSTRUCTION [None]
  - RESPIRATORY ARREST [None]
  - ABDOMINAL PAIN UPPER [None]
